FAERS Safety Report 15504515 (Version 1)
Quarter: 2018Q4

REPORT INFORMATION
  Report Type: Spontaneous
  Country: US (occurrence: US)
  Receive Date: 20181009
  Receipt Date: 20181009
  Transmission Date: 20190205
  Serious: Yes (Other)
  Sender: FDA-Public Use
  Company Number: None

PATIENT
  Age: 78 Year
  Sex: Female
  Weight: 87.75 kg

DRUGS (16)
  1. LACTOSE [Concomitant]
     Active Substance: LACTOSE
  2. SENNA [Concomitant]
     Active Substance: SENNA LEAF\SENNOSIDES\SENNOSIDES A AND B
  3. TEMOZOLOMIDE. [Suspect]
     Active Substance: TEMOZOLOMIDE
     Indication: BRAIN NEOPLASM MALIGNANT
     Dosage: 140 MG 2 CAPS FOR 5 DAYS ORAL
     Route: 048
     Dates: start: 20170608
  4. LEVETIRACETAM. [Concomitant]
     Active Substance: LEVETIRACETAM
  5. CLONIDINE. [Concomitant]
     Active Substance: CLONIDINE
  6. SERTRALINE [Concomitant]
     Active Substance: SERTRALINE HYDROCHLORIDE
  7. DAPSONE. [Concomitant]
     Active Substance: DAPSONE
  8. GABAPENTIN. [Concomitant]
     Active Substance: GABAPENTIN
  9. DOXAZOSIN [Concomitant]
     Active Substance: DOXAZOSIN\DOXAZOSIN MESYLATE
  10. PROCHLORPERAZINE. [Concomitant]
     Active Substance: PROCHLORPERAZINE
  11. LORTAB [Concomitant]
     Active Substance: ACETAMINOPHEN\HYDROCODONE BITARTRATE
  12. JANUVIA [Concomitant]
     Active Substance: SITAGLIPTIN PHOSPHATE
  13. LANTUS [Concomitant]
     Active Substance: INSULIN GLARGINE
  14. PREDNISONE. [Concomitant]
     Active Substance: PREDNISONE
  15. CARVEDILOL. [Concomitant]
     Active Substance: CARVEDILOL
  16. FUROSIMIDE [Concomitant]
     Active Substance: FUROSEMIDE

REACTIONS (1)
  - Full blood count decreased [None]

NARRATIVE: CASE EVENT DATE: 20181009
